FAERS Safety Report 15282785 (Version 1)
Quarter: 2018Q3

REPORT INFORMATION
  Report Type: Spontaneous
  Country: DK (occurrence: DK)
  Receive Date: 20180816
  Receipt Date: 20180816
  Transmission Date: 20181010
  Serious: Yes (Hospitalization)
  Sender: FDA-Public Use
  Company Number: DK-TEVA-2018-DK-940815

PATIENT
  Age: 83 Year
  Sex: Female

DRUGS (7)
  1. AMLODIPINE [Suspect]
     Active Substance: AMLODIPINE BESYLATE
     Indication: HYPERTENSION
     Dosage: 10 MILLIGRAM DAILY;
     Route: 048
     Dates: start: 20160818, end: 20180630
  2. LOSARTANKALIUM/HYDROCHLORTHIAZID ^TEVA^ [Concomitant]
     Active Substance: HYDROCHLOROTHIAZIDE\LOSARTAN POTASSIUM
     Indication: HYPERTENSION
     Dosage: 1 DOSAGE FORMS DAILY; STYRKE: 100+25 MG.
     Route: 048
     Dates: start: 20150410, end: 20180528
  3. IMOVANE [Concomitant]
     Active Substance: ZOPICLONE
     Indication: SLEEP DISORDER
     Dosage: 7.5 MILLIGRAM DAILY;
     Route: 048
     Dates: start: 20170424, end: 20180613
  4. AMITRIPTYLIN ^DAK^ [Concomitant]
     Indication: NERVOUSNESS
     Dosage: 12.5 MILLIGRAM DAILY;
     Route: 048
     Dates: start: 20131125, end: 20180601
  5. METOPROLOLSUCCINAT ^ORION^ [Concomitant]
     Indication: HYPERTENSION
     Dosage: 50 MILLIGRAM DAILY;
     Route: 048
     Dates: start: 20170322, end: 20180528
  6. OXAPAX [Concomitant]
     Active Substance: OXAZEPAM
     Indication: SEDATIVE THERAPY
     Dosage: 15 MILLIGRAM DAILY;
     Route: 048
     Dates: start: 20180416, end: 20180601
  7. IMOZOP [Concomitant]
     Active Substance: ZOPICLONE
     Indication: SLEEP DISORDER
     Route: 048
     Dates: start: 20180613

REACTIONS (4)
  - Tongue oedema [Recovering/Resolving]
  - Dysarthria [Recovering/Resolving]
  - Mucosal dryness [Unknown]
  - Dyspnoea [Recovering/Resolving]

NARRATIVE: CASE EVENT DATE: 20180630
